FAERS Safety Report 5335695-1 (Version None)
Quarter: 2007Q1

REPORT INFORMATION
  Report Type: 
  Country: None (occurrence: None)
  Receive Date: 20070322
  Receipt Date: 20070131
  Transmission Date: 20070707
  Serious: No
  Sender: FDA-Public Use
  Company Number: 2007US000272

PATIENT
  Age: 68 Year
  Sex: Male

DRUGS (6)
  1. VESICARE [Suspect]
     Indication: HYPERTONIC BLADDER
     Dosage: 10 MG, UID/QD, ORAL
     Route: 048
     Dates: start: 20060301
  2. OXYBUTYNIN CHLORIDE [Concomitant]
  3. LIPITOR [Concomitant]
  4. TOPROL-XL [Concomitant]
  5. LOTREL [Concomitant]
  6. COUMADIN [Concomitant]

REACTIONS (2)
  - DRUG INEFFECTIVE [None]
  - DRY MOUTH [None]
